FAERS Safety Report 4380324-7 (Version None)
Quarter: 2004Q2

REPORT INFORMATION
  Report Type: 
  Country: None (occurrence: None)
  Receive Date: 20040614
  Receipt Date: 20040601
  Transmission Date: 20050107
  Serious: Yes (Hospitalization, Disabling, Other)
  Sender: FDA-Public Use
  Company Number: 2004015548

PATIENT
  Age: 35 Year
  Sex: Male
  Weight: 44 kg

DRUGS (1)
  1. VFEND [Suspect]
     Indication: BRONCHOPULMONARY ASPERGILLOSIS ALLERGIC
     Dosage: 400 MG (2 IN 1 D),ORAL
     Route: 048
     Dates: start: 20030101, end: 20030101

REACTIONS (3)
  - BLINDNESS [None]
  - HEREDITARY OPTIC ATROPHY [None]
  - OPTIC NEURITIS RETROBULBAR [None]
